FAERS Safety Report 18567366 (Version 4)
Quarter: 2023Q2

REPORT INFORMATION
  Report Type: Report from Study
  Country: ES (occurrence: None)
  Receive Date: 20201202
  Receipt Date: 20230620
  Transmission Date: 20230722
  Serious: Yes (Hospitalization)
  Sender: FDA-Public Use
  Company Number: ES-ROCHE-2719027

PATIENT
  Age: 74 Year
  Sex: Male
  Weight: 69 kg

DRUGS (27)
  1. TIRAGOLUMAB [Suspect]
     Active Substance: TIRAGOLUMAB
     Indication: Lung squamous cell carcinoma metastatic
     Dosage: (MOST RECENT DOSE AT 01:20 PM) DOSE LAST STUDY DRUG ADMIN PRIOR AE 600 MG? START DATE OF MOST RECENT
     Route: 042
     Dates: start: 20201112
  2. ATEZOLIZUMAB [Suspect]
     Active Substance: ATEZOLIZUMAB
     Indication: Lung squamous cell carcinoma metastatic
     Dosage: (MOST RECENT DOSE AT 10:50 AM) DOSE LAST STUDY DRUG ADMIN PRIOR AE 1200 MG? START DATE OF MOST RECEN
     Route: 041
     Dates: start: 20201112
  3. PACLITAXEL [Suspect]
     Active Substance: PACLITAXEL
     Indication: Lung squamous cell carcinoma metastatic
     Dosage: DOSE LAST STUDY DRUG ADMIN PRIOR AE 352 MG
     Route: 042
     Dates: start: 20201112
  4. CARBOPLATIN [Suspect]
     Active Substance: CARBOPLATIN
     Indication: Lung squamous cell carcinoma metastatic
     Dosage: DOSE LAST STUDY DRUG ADMIN PRIOR AE  553.72 MG
     Route: 042
     Dates: start: 20201112
  5. ACETAMINOPHEN [Concomitant]
     Active Substance: ACETAMINOPHEN
     Indication: Tumour pain
     Route: 048
     Dates: start: 20201021, end: 20201118
  6. ACETAMINOPHEN [Concomitant]
     Active Substance: ACETAMINOPHEN
     Route: 042
     Dates: start: 20201119
  7. ACETAMINOPHEN [Concomitant]
     Active Substance: ACETAMINOPHEN
     Route: 048
     Dates: start: 20201122, end: 20201126
  8. ACETAMINOPHEN [Concomitant]
     Active Substance: ACETAMINOPHEN
     Route: 048
     Dates: start: 20201127
  9. ZALDIAR [Concomitant]
     Active Substance: ACETAMINOPHEN\TRAMADOL HYDROCHLORIDE
     Indication: Tumour pain
     Route: 048
     Dates: start: 20201106, end: 20201118
  10. CISPLATIN [Concomitant]
     Active Substance: CISPLATIN
     Indication: Neoplasm malignant
     Route: 042
     Dates: start: 20200830, end: 20201031
  11. GEMCITABINE [Concomitant]
     Active Substance: GEMCITABINE
     Indication: Neoplasm malignant
     Dates: start: 20200830, end: 20201031
  12. CARBOPLATIN [Concomitant]
     Active Substance: CARBOPLATIN
     Indication: Neoplasm malignant
     Dates: start: 20200830, end: 20201031
  13. OMEPRAZOLE [Concomitant]
     Active Substance: OMEPRAZOLE
     Route: 042
     Dates: start: 20201119, end: 20201119
  14. OMEPRAZOLE [Concomitant]
     Active Substance: OMEPRAZOLE
     Route: 042
     Dates: start: 20201120
  15. OMEPRAZOLE [Concomitant]
     Active Substance: OMEPRAZOLE
     Route: 042
     Dates: start: 20201124, end: 20201126
  16. OMEPRAZOLE [Concomitant]
     Active Substance: OMEPRAZOLE
     Route: 048
     Dates: start: 20201127
  17. METAMIZOL [Concomitant]
     Active Substance: METAMIZOLE SODIUM
     Indication: Tumour pain
     Route: 042
     Dates: start: 20201119, end: 20201121
  18. METAMIZOL [Concomitant]
     Active Substance: METAMIZOLE SODIUM
     Route: 042
     Dates: start: 20201122, end: 20201126
  19. METAMIZOL [Concomitant]
     Active Substance: METAMIZOLE SODIUM
     Route: 048
     Dates: start: 20201127
  20. PIPERACILIN [Concomitant]
     Route: 042
     Dates: start: 20201119, end: 20201127
  21. TAZOBACTAM [Concomitant]
     Active Substance: TAZOBACTAM
     Route: 042
     Dates: start: 20201119, end: 20201127
  22. FILGRASTIM [Concomitant]
     Active Substance: FILGRASTIM
     Indication: Neutropenia
     Route: 058
     Dates: start: 20201120, end: 20201123
  23. DIAZEPAM [Concomitant]
     Active Substance: DIAZEPAM
     Route: 048
     Dates: start: 20201122, end: 20201122
  24. OLANZAPINE [Concomitant]
     Active Substance: OLANZAPINE
     Route: 048
  25. METOCLOPRAMIDE [Concomitant]
     Active Substance: METOCLOPRAMIDE
     Route: 042
     Dates: start: 20201122, end: 20201126
  26. METOCLOPRAMIDE [Concomitant]
     Active Substance: METOCLOPRAMIDE
     Route: 048
     Dates: start: 20201127
  27. ENOXAPARIN [Concomitant]
     Active Substance: ENOXAPARIN
     Route: 058
     Dates: start: 20201124, end: 20201126

REACTIONS (1)
  - Ileus [Recovered/Resolved]

NARRATIVE: CASE EVENT DATE: 20201117
